FAERS Safety Report 21056670 (Version 1)
Quarter: 2022Q3

REPORT INFORMATION
  Report Type: Spontaneous
  Country: US (occurrence: None)
  Receive Date: 20220707
  Receipt Date: 20220707
  Transmission Date: 20221027
  Serious: Yes (Disabling)
  Sender: FDA-Public Use
  Company Number: None

PATIENT
  Age: 72 Year
  Sex: Female
  Weight: 85.5 kg

DRUGS (1)
  1. PAXLOVID [Suspect]
     Active Substance: NIRMATRELVIR\RITONAVIR
     Indication: COVID-19
     Dosage: OTHER QUANTITY : 30 TABLET(S);?OTHER FREQUENCY : 3 TABS TWICE DAILY;?
     Route: 048
     Dates: start: 20220624, end: 20220629

REACTIONS (5)
  - Fatigue [None]
  - Oropharyngeal pain [None]
  - SARS-CoV-2 test positive [None]
  - Rebound effect [None]
  - Taste disorder [None]

NARRATIVE: CASE EVENT DATE: 20220704
